FAERS Safety Report 13205945 (Version 1)
Quarter: 2017Q1

REPORT INFORMATION
  Report Type: Spontaneous
  Country: US (occurrence: US)
  Receive Date: 20170208
  Receipt Date: 20170208
  Transmission Date: 20170428
  Serious: No
  Sender: FDA-Public Use
  Company Number: None

PATIENT
  Age: 48 Year
  Sex: Male

DRUGS (1)
  1. AMOXICILL/CLAVULANATE 875/125MG [Suspect]
     Active Substance: AMOXICILLIN\CLAVULANATE POTASSIUM
     Indication: BRONCHITIS
     Route: 048
     Dates: start: 20170206, end: 20170207

REACTIONS (2)
  - Pruritus [None]
  - Pharyngeal oedema [None]

NARRATIVE: CASE EVENT DATE: 20170207
